FAERS Safety Report 16270501 (Version 1)
Quarter: 2019Q2

REPORT INFORMATION
  Report Type: Spontaneous
  Country: NL (occurrence: AT)
  Receive Date: 20190503
  Receipt Date: 20190503
  Transmission Date: 20190711
  Serious: Yes (Other)
  Sender: FDA-Public Use
  Company Number: AT-FRESENIUS KABI-FK201905038

PATIENT
  Sex: Female

DRUGS (9)
  1. PEGYLATED LIPOSOMAL DOXORUBICIN HYDROCHLORIDE [Suspect]
     Active Substance: DOXORUBICIN HYDROCHLORIDE
     Indication: ADENOCARCINOMA
     Route: 065
     Dates: end: 201810
  2. PACLITAXEL. [Suspect]
     Active Substance: PACLITAXEL
     Route: 005
  3. CARBOPLATIN. [Suspect]
     Active Substance: CARBOPLATIN
     Indication: ADENOCARCINOMA
     Dosage: UNK (4 CYCLES)
     Route: 065
  4. CARBOPLATIN. [Suspect]
     Active Substance: CARBOPLATIN
     Route: 065
  5. PACLITAXEL. [Suspect]
     Active Substance: PACLITAXEL
     Indication: ADENOCARCINOMA
     Route: 065
  6. PACLITAXEL. [Suspect]
     Active Substance: PACLITAXEL
     Indication: ADENOCARCINOMA
     Dosage: 175 MG, UNK
     Route: 005
  7. PACLITAXEL (MANUFACTURER UNKNOWN) [Suspect]
     Active Substance: PACLITAXEL
     Indication: ADENOCARCINOMA
     Dosage: 175 MG/M2, Q3W
     Route: 065
  8. CISPLATIN. [Suspect]
     Active Substance: CISPLATIN
     Indication: ADENOCARCINOMA
     Route: 065
  9. TRABECTEDIN [Suspect]
     Active Substance: TRABECTEDIN
     Indication: ADENOCARCINOMA
     Route: 065
     Dates: end: 201810

REACTIONS (10)
  - Angiopathy [Unknown]
  - Product use in unapproved indication [Unknown]
  - Heart rate increased [Unknown]
  - Rash [Unknown]
  - Therapeutic response decreased [Unknown]
  - Metastases to liver [Unknown]
  - Nausea [Unknown]
  - Paraesthesia [Unknown]
  - Off label use [Unknown]
  - Blood pressure increased [Unknown]

NARRATIVE: CASE EVENT DATE: 20180326
